FAERS Safety Report 6919955-6 (Version None)
Quarter: 2010Q3

REPORT INFORMATION
  Report Type: 
  Country: None (occurrence: None)
  Receive Date: 20100809
  Receipt Date: 20100726
  Transmission Date: 20110219
  Serious: Yes (Other)
  Sender: FDA-Public Use
  Company Number: 10-091

PATIENT
  Age: 30 Year
  Sex: Female

DRUGS (3)
  1. CEFOTAXIME SODIUM [Suspect]
     Indication: SINUSITIS
     Dosage: 1 G, 6 TIMES A DAY, IV
     Route: 042
  2. FOSFOMYCIN [Concomitant]
  3. CIPROFLOXACIN [Concomitant]

REACTIONS (2)
  - ACUTE GENERALISED EXANTHEMATOUS PUSTULOSIS [None]
  - SKIN TEST POSITIVE [None]
